FAERS Safety Report 20279283 (Version 1)
Quarter: 2022Q1

REPORT INFORMATION
  Report Type: Other
  Country: None (occurrence: IN)
  Receive Date: 20220103
  Receipt Date: 20220103
  Transmission Date: 20220423
  Serious: Yes (Death, Hospitalization)
  Sender: FDA-Public Use
  Company Number: IN-Appco Pharma LLC-2123566

PATIENT
  Age: 29 Month
  Sex: Male
  Weight: 2.3 kg

DRUGS (2)
  1. SILDENAFIL [Suspect]
     Active Substance: SILDENAFIL
     Indication: Pulmonary arterial hypertension
     Route: 042
  2. BOSENTAN [Suspect]
     Active Substance: BOSENTAN
     Route: 048

REACTIONS (2)
  - Product use issue [Fatal]
  - Condition aggravated [Fatal]
